FAERS Safety Report 8345388-4 (Version None)
Quarter: 2012Q2

REPORT INFORMATION
  Report Type: 
  Country: None (occurrence: None)
  Receive Date: 20120508
  Receipt Date: 20120427
  Transmission Date: 20120825
  Serious: Yes (Life-Threatening, Hospitalization)
  Sender: FDA-Public Use
  Company Number: HU-ELI_LILLY_AND_COMPANY-10-11-00138

PATIENT
  Sex: Male
  Weight: 99 kg

DRUGS (11)
  1. RANITIDINE [Concomitant]
     Indication: PRODUCT USED FOR UNKNOWN INDICATION
     Dosage: 300 MG, 2/D
  2. TRIAMCINOLONE [Concomitant]
     Indication: PRODUCT USED FOR UNKNOWN INDICATION
     Dosage: UNK, 2/D
     Dates: start: 20100617
  3. TRENTAL [Concomitant]
     Indication: PRODUCT USED FOR UNKNOWN INDICATION
     Dosage: 1 U, 2/D
     Route: 048
     Dates: start: 19900101
  4. CISPLATIN [Suspect]
     Indication: NON-SMALL CELL LUNG CANCER
     Dosage: 157 MG, UNK
     Route: 042
     Dates: start: 20100330, end: 20100623
  5. NECITUMUMAB (11F8) (LY3012211) [Suspect]
     Indication: NON-SMALL CELL LUNG CANCER
     Dosage: 800 MG, UNK
     Route: 042
     Dates: start: 20100330, end: 20100623
  6. GEMCITABINE HYDROCHLORIDE [Suspect]
     Indication: NON-SMALL CELL LUNG CANCER
     Dosage: 2625 MG, UNK
     Route: 042
     Dates: start: 20100330, end: 20100623
  7. FERROUS SULFATE TAB [Concomitant]
     Indication: PRODUCT USED FOR UNKNOWN INDICATION
     Dosage: 1 U, 2/D
     Dates: start: 20100531
  8. AMILOZID [Concomitant]
     Indication: PRODUCT USED FOR UNKNOWN INDICATION
     Dosage: 1 U, DAILY (1/D)
     Route: 048
     Dates: start: 19900101
  9. CETIRIZINE HCL [Concomitant]
     Indication: PRODUCT USED FOR UNKNOWN INDICATION
     Dosage: 1 U, DAILY (1/D)
     Dates: start: 20100601
  10. CALCIUM DOBESILATE [Concomitant]
     Indication: PRODUCT USED FOR UNKNOWN INDICATION
     Dosage: 1 U, 2/D
     Route: 048
     Dates: start: 19900101
  11. METOPROLOL SUCCINATE [Concomitant]
     Indication: PRODUCT USED FOR UNKNOWN INDICATION
     Dosage: 50 MG, DAILY (1/D)
     Dates: start: 20000101

REACTIONS (6)
  - LEUKOPENIA [None]
  - ASTHENIA [None]
  - THROMBOCYTOPENIA [None]
  - HYPERURICAEMIA [None]
  - PANCYTOPENIA [None]
  - ANAEMIA [None]
